FAERS Safety Report 5079739-3 (Version None)
Quarter: 2006Q3

REPORT INFORMATION
  Report Type: 
  Country: None (occurrence: None)
  Receive Date: 20060815
  Receipt Date: 20050919
  Transmission Date: 20061208
  Serious: No
  Sender: FDA-Public Use
  Company Number: US-GLAXOSMITHKLINE-A0574749A

PATIENT
  Age: 64 Year
  Sex: Female

DRUGS (3)
  1. TAGAMET HB 200 [Suspect]
  2. TAGAMET [Concomitant]
     Route: 048
  3. CIMETIDINE [Concomitant]

REACTIONS (2)
  - DRUG INEFFECTIVE [None]
  - INTENTIONAL DRUG MISUSE [None]
